FAERS Safety Report 10373627 (Version 1)
Quarter: 2014Q3

REPORT INFORMATION
  Report Type: Spontaneous
  Country: IT (occurrence: IT)
  Receive Date: 20140808
  Receipt Date: 20140808
  Transmission Date: 20150326
  Serious: Yes (Hospitalization)
  Sender: FDA-Public Use
  Company Number: PHHY2014IT094325

PATIENT
  Sex: Female

DRUGS (3)
  1. FLURAZEPAM [Suspect]
     Active Substance: FLURAZEPAM\FLURAZEPAM HYDROCHLORIDE
     Indication: SELF-INJURIOUS IDEATION
     Dosage: 28 DF, ONCE/SINGLE
     Route: 048
     Dates: start: 20130903, end: 20130903
  2. DIAZEPAM. [Suspect]
     Active Substance: DIAZEPAM
     Indication: SELF-INJURIOUS IDEATION
     Dosage: 100 MG, ONCE/SINGLE
     Route: 048
     Dates: start: 20130903, end: 20130903
  3. PAROXETINE [Concomitant]
     Active Substance: PAROXETINE\PAROXETINE HYDROCHLORIDE

REACTIONS (4)
  - Sopor [Recovering/Resolving]
  - Bradyphrenia [Recovering/Resolving]
  - Drug abuse [Recovering/Resolving]
  - Speech disorder [Recovering/Resolving]

NARRATIVE: CASE EVENT DATE: 20130903
